APPROVED DRUG PRODUCT: NICARDIPINE HYDROCHLORIDE IN 0.9% SODIUM CHLORIDE
Active Ingredient: NICARDIPINE HYDROCHLORIDE
Strength: 40MG/200ML (0.2MG/ML)
Dosage Form/Route: INJECTABLE;INTRAVENOUS
Application: A220243 | Product #002 | TE Code: AP
Applicant: CAPLIN STERILES LTD
Approved: Oct 22, 2025 | RLD: No | RS: No | Type: RX